FAERS Safety Report 5515064-1 (Version None)
Quarter: 2007Q4

REPORT INFORMATION
  Report Type: 
  Country: None (occurrence: None)
  Receive Date: 20071113
  Receipt Date: 20061211
  Transmission Date: 20080405
  Serious: No
  Sender: FDA-Public Use
  Company Number: A0631146A

PATIENT
  Age: 67 Year
  Sex: Female

DRUGS (9)
  1. COREG [Suspect]
     Indication: HYPERTENSION
     Dosage: 12.5MG TWICE PER DAY
     Route: 048
     Dates: start: 20061107
  2. PLAVIX [Concomitant]
  3. ASA BABY [Concomitant]
  4. NITROGLYCERIN [Concomitant]
  5. METFORMIN HCL [Concomitant]
  6. PREMARIN [Concomitant]
  7. LISINOPRIL [Concomitant]
  8. LASIX [Concomitant]
  9. POTASSIUM CHLORIDE [Concomitant]

REACTIONS (6)
  - CHEST PAIN [None]
  - COUGH [None]
  - DYSPNOEA [None]
  - HEADACHE [None]
  - INSOMNIA [None]
  - PRURITUS [None]
